FAERS Safety Report 7941148-4 (Version None)
Quarter: 2011Q4

REPORT INFORMATION
  Report Type: 
  Country: None (occurrence: None)
  Receive Date: 20111128
  Receipt Date: 20110929
  Transmission Date: 20120403
  Serious: Yes (Other)
  Sender: FDA-Public Use
  Company Number: PK-ROXANE LABORATORIES, INC.-2011-DE-05496GD

PATIENT
  Age: 62 Year
  Sex: Male

DRUGS (3)
  1. RISPERIDONE [Suspect]
     Indication: HYPOMANIA
     Dosage: STARTED WITH 1 MG/DAY, GRADUALLY REDUCED TO 0.5 MG/DAY
  2. SERTRALINE HYDROCHLORIDE [Suspect]
     Indication: DEPRESSION
     Dosage: 50 MG
  3. SERTRALINE HYDROCHLORIDE [Suspect]
     Dosage: 100 MG

REACTIONS (3)
  - DYSPNOEA [None]
  - RESPIRATORY DYSKINESIA [None]
  - HYPOMANIA [None]
